FAERS Safety Report 4608774-1 (Version None)
Quarter: 2005Q1

REPORT INFORMATION
  Report Type: 
  Country: None (occurrence: None)
  Receive Date: 20050315
  Receipt Date: 20040418
  Transmission Date: 20050727
  Serious: Yes (Other)
  Sender: FDA-Public Use
  Company Number: BE-JNJFOC-20040404517

PATIENT
  Age: 5 Year
  Sex: Female

DRUGS (1)
  1. PROPULSID [Suspect]
     Route: 065
     Dates: start: 20030918

REACTIONS (1)
  - FUNDOPLICATION [None]
